FAERS Safety Report 8503698-1 (Version None)
Quarter: 2012Q3

REPORT INFORMATION
  Report Type: 
  Country: None (occurrence: None)
  Receive Date: 20120711
  Receipt Date: 20120625
  Transmission Date: 20120928
  Serious: Yes (Hospitalization)
  Sender: FDA-Public Use
  Company Number: JP-JNJFOC-20110300562

PATIENT
  Age: 72 Year
  Sex: Male
  Weight: 54 kg

DRUGS (11)
  1. REMICADE [Suspect]
     Route: 042
     Dates: start: 20100423
  2. PROPETO [Concomitant]
     Indication: PSORIATIC ARTHROPATHY
     Route: 003
     Dates: start: 20100430
  3. CLINORIL [Concomitant]
     Indication: PSORIATIC ARTHROPATHY
     Route: 048
     Dates: start: 20100813
  4. DOVONEX [Concomitant]
     Indication: PSORIATIC ARTHROPATHY
     Route: 003
  5. ANTEBATE [Concomitant]
     Indication: PSORIATIC ARTHROPATHY
     Route: 003
  6. LOCOIDON [Concomitant]
     Indication: PSORIATIC ARTHROPATHY
     Route: 003
     Dates: start: 20090925
  7. REMICADE [Suspect]
     Route: 042
     Dates: start: 20100409
  8. REMICADE [Suspect]
     Indication: PSORIATIC ARTHROPATHY
     Route: 042
     Dates: start: 20100527
  9. LORCAM [Concomitant]
     Indication: PSORIATIC ARTHROPATHY
     Route: 048
     Dates: start: 20100720, end: 20100812
  10. RINDERON-V [Concomitant]
     Indication: PSORIATIC ARTHROPATHY
     Route: 003
     Dates: start: 20080101
  11. ETRETINATE [Concomitant]
     Indication: PSORIATIC ARTHROPATHY
     Route: 048
     Dates: start: 20100610

REACTIONS (2)
  - BRONCHITIS [None]
  - PYREXIA [None]
